FAERS Safety Report 21688315 (Version 5)
Quarter: 2024Q1

REPORT INFORMATION
  Report Type: Spontaneous
  Country: US (occurrence: US)
  Receive Date: 20221206
  Receipt Date: 20240214
  Transmission Date: 20240410
  Serious: No
  Sender: FDA-Public Use
  Company Number: US-BIOGEN-2022BI01173080

PATIENT
  Age: 66 Year
  Sex: Female

DRUGS (3)
  1. TYSABRI [Suspect]
     Active Substance: NATALIZUMAB
     Indication: Multiple sclerosis
     Route: 050
     Dates: start: 20220909
  2. MOUNJARO [Concomitant]
     Active Substance: TIRZEPATIDE
     Route: 050
  3. INSULIN NOS [Concomitant]
     Active Substance: INSULIN NOS
     Dosage: SLIDING SCALE INSULIN AS?NEEDED

REACTIONS (6)
  - Cognitive disorder [Not Recovered/Not Resolved]
  - Memory impairment [Unknown]
  - Confusional state [Unknown]
  - Feeling hot [Unknown]
  - Mobility decreased [Unknown]
  - Vomiting [Recovered/Resolved]

NARRATIVE: CASE EVENT DATE: 20240205
